FAERS Safety Report 12209894 (Version 4)
Quarter: 2016Q3

REPORT INFORMATION
  Report Type: Spontaneous
  Country: GB (occurrence: GB)
  Receive Date: 20160325
  Receipt Date: 20160826
  Transmission Date: 20161109
  Serious: Yes (Life-Threatening, Hospitalization)
  Sender: FDA-Public Use
  Company Number: GB-TEVA-645295ACC

PATIENT
  Age: 23 Year
  Sex: Female
  Weight: 44.2 kg

DRUGS (12)
  1. NITROFURANTOIN. [Suspect]
     Active Substance: NITROFURANTOIN
     Indication: PRODUCT USED FOR UNKNOWN INDICATION
     Dosage: 50 MILLIGRAM DAILY; NOCTE?
     Route: 065
  2. NOCTONIN [Concomitant]
     Indication: EPILEPSY
  3. GLYCOPYRROLATE. [Concomitant]
     Active Substance: GLYCOPYRROLATE
     Indication: PRODUCT USED FOR UNKNOWN INDICATION
     Dosage: 5 MILLIGRAM DAILY;
     Route: 048
  4. LAMICTAL [Concomitant]
     Active Substance: LAMOTRIGINE
     Indication: SEIZURE
     Dosage: 150 MG 125 MG AM, 150 MG PM?
     Route: 048
  5. MOVICOL [Suspect]
     Active Substance: POLYETHYLENE GLYCOL 3350\POTASSIUM CHLORIDE\SODIUM BICARBONATE\SODIUM CHLORIDE
     Dosage: 2-3 SACHETS WHEN NEEDED?
     Route: 065
  6. NEURONTIN [Concomitant]
     Active Substance: GABAPENTIN
     Indication: EPILEPSY
     Dosage: 1500 MILLIGRAM DAILY; AT AGE 5?
     Route: 048
  7. BUCCOLAM [Suspect]
     Active Substance: MIDAZOLAM HYDROCHLORIDE
     Dosage: WHEN NEEDED IF SEIZURE LASTS FOR 5 OR MORE MINUTES
     Route: 065
  8. CHLORAL HYDRATE [Concomitant]
     Active Substance: CHLORAL HYDRATE
     Indication: PRODUCT USED FOR UNKNOWN INDICATION
     Dosage: 1.2 MILLIGRAM DAILY;
     Route: 048
  9. FRISIUM [Suspect]
     Active Substance: CLOBAZAM
     Indication: EPILEPSY
     Dosage: 30 MILLIGRAM DAILY;
     Route: 048
     Dates: start: 20150212
  10. FRISIUM [Suspect]
     Active Substance: CLOBAZAM
     Dosage: 90 MILLIGRAM DAILY;
     Route: 048
  11. NORMACOL [Suspect]
     Active Substance: KARAYA GUM
     Indication: PRODUCT USED FOR UNKNOWN INDICATION
     Route: 065
  12. NOCTONIN [Concomitant]
     Indication: SLEEP DISORDER
     Dosage: 4 MILLIGRAM DAILY;
     Route: 048

REACTIONS (5)
  - Urticaria [Unknown]
  - Drug ineffective [Unknown]
  - Constipation [Not Recovered/Not Resolved]
  - Drooling [Not Recovered/Not Resolved]
  - Seizure [Not Recovered/Not Resolved]
